FAERS Safety Report 10449065 (Version 1)
Quarter: 2014Q3

REPORT INFORMATION
  Report Type: Spontaneous
  Country: US (occurrence: None)
  Receive Date: 20140911
  Receipt Date: 20140911
  Transmission Date: 20150326
  Serious: Yes (Death)
  Sender: FDA-Public Use
  Company Number: None

PATIENT
  Age: 77 Year
  Sex: Male

DRUGS (8)
  1. REVLIMID [Suspect]
     Active Substance: LENALIDOMIDE
     Indication: PLASMA CELL MYELOMA
     Route: 048
     Dates: start: 20140224, end: 20140907
  2. DILTIZEM [Concomitant]
  3. NORCO [Concomitant]
     Active Substance: ACETAMINOPHEN\HYDROCODONE BITARTRATE
  4. REVLIMID [Concomitant]
     Active Substance: LENALIDOMIDE
  5. ALBUMIN [Concomitant]
     Active Substance: ALBUMIN (HUMAN)
  6. KEFLEX [Concomitant]
     Active Substance: CEPHALEXIN
  7. DECADRON [Concomitant]
     Active Substance: DEXAMETHASONE
  8. LASIX [Concomitant]
     Active Substance: FUROSEMIDE

REACTIONS (5)
  - Septic shock [None]
  - Dialysis [None]
  - Mental status changes [None]
  - Hypotension [None]
  - Pseudomonas test positive [None]

NARRATIVE: CASE EVENT DATE: 20140907
